FAERS Safety Report 24658274 (Version 4)
Quarter: 2025Q4

REPORT INFORMATION
  Report Type: Report from Study
  Country: CN (occurrence: CN)
  Receive Date: 20241125
  Receipt Date: 20251009
  Transmission Date: 20260118
  Serious: Yes (Other)
  Sender: ROCHE
  Company Number: CN-ROCHE-10000110375

PATIENT
  Age: 54 Year
  Sex: Female
  Weight: 54 kg

DRUGS (33)
  1. POLATUZUMAB VEDOTIN [Suspect]
     Active Substance: POLATUZUMAB VEDOTIN
     Indication: Diffuse large B-cell lymphoma
     Dosage: FREQUENCY: ONCE, START: 12-AUG-2024
     Route: 042
     Dates: end: 20240812
  2. POLATUZUMAB VEDOTIN [Suspect]
     Active Substance: POLATUZUMAB VEDOTIN
     Dosage: FREQUENCY: ONCE, START: 12-AUG-2024, 28-AUG-2024
     Route: 042
     Dates: start: 20240828, end: 20240828
  3. RITUXIMAB [Suspect]
     Active Substance: RITUXIMAB
     Indication: Diffuse large B-cell lymphoma
     Dosage: START: 09-AUG-2024
     Route: 042
     Dates: start: 20240809, end: 20240809
  4. RITUXIMAB [Suspect]
     Active Substance: RITUXIMAB
     Dosage: START: 09-AUG-2024
     Route: 042
  5. CYCLOPHOSPHAMIDE [Suspect]
     Active Substance: CYCLOPHOSPHAMIDE
     Indication: Diffuse large B-cell lymphoma
     Route: 042
     Dates: start: 20240806, end: 20240806
  6. CYCLOPHOSPHAMIDE [Suspect]
     Active Substance: CYCLOPHOSPHAMIDE
     Route: 042
     Dates: start: 20240827, end: 20240827
  7. DOXORUBICIN HYDROCHLORIDE [Suspect]
     Active Substance: DOXORUBICIN HYDROCHLORIDE
     Indication: Diffuse large B-cell lymphoma
     Route: 042
     Dates: start: 20240807, end: 20240807
  8. DOXORUBICIN HYDROCHLORIDE [Suspect]
     Active Substance: DOXORUBICIN HYDROCHLORIDE
     Route: 042
     Dates: start: 20240826, end: 20240826
  9. PREDNISONE [Suspect]
     Active Substance: PREDNISONE
     Indication: Diffuse large B-cell lymphoma
     Route: 048
     Dates: start: 20240806, end: 20240807
  10. PREDNISONE [Suspect]
     Active Substance: PREDNISONE
     Route: 048
     Dates: start: 20240828, end: 20240829
  11. ENOXAPARIN SODIUM [Concomitant]
     Active Substance: ENOXAPARIN SODIUM
     Dates: start: 20240826, end: 20240828
  12. Amifostin [Concomitant]
  13. ONDANSETRON HYDROCHLORIDE [Concomitant]
     Active Substance: ONDANSETRON HYDROCHLORIDE
  14. DEXAMETHASONE SODIUM PHOSPHATE [Concomitant]
     Active Substance: DEXAMETHASONE SODIUM PHOSPHATE
  15. ESOMEPRAZOLE [Concomitant]
     Active Substance: ESOMEPRAZOLE
  16. Dexrazoxan [Concomitant]
  17. PROMETHAZINE HYDROCHLORIDE [Concomitant]
     Active Substance: PROMETHAZINE HYDROCHLORIDE
  18. DICLOFENAC SODIUM [Concomitant]
     Active Substance: DICLOFENAC SODIUM
  19. CEFOPERAZONE SODIUM\SULBACTAM SODIUM [Concomitant]
     Active Substance: CEFOPERAZONE SODIUM\SULBACTAM SODIUM
  20. ACETYLCYSTEINE [Concomitant]
     Active Substance: ACETYLCYSTEINE
  21. Moxifloxacin hydrochloride and sodium chlorid [Concomitant]
  22. magnesium isoglycyrrhizinat [Concomitant]
  23. Fosappitan dimeglumine [Concomitant]
  24. Sulphonamide [Concomitant]
  25. Pegylated recombinant human granulocyte stimulating factor [Concomitant]
  26. METOCLOPRAMIDE HYDROCHLORIDE [Concomitant]
     Active Substance: METOCLOPRAMIDE HYDROCHLORIDE
  27. GLUTATHIONE [Concomitant]
     Active Substance: GLUTATHIONE
  28. GLUTATHIONE [Concomitant]
     Active Substance: GLUTATHIONE
  29. RABEPRAZOLE [Concomitant]
     Active Substance: RABEPRAZOLE
  30. TROPISETRON CITRATE [Concomitant]
     Active Substance: TROPISETRON CITRATE
  31. ENTECAVIR [Concomitant]
     Active Substance: ENTECAVIR
  32. SODIUM CHLORIDE [Concomitant]
     Active Substance: SODIUM CHLORIDE
  33. BICYCLOL [Concomitant]
     Active Substance: BICYCLOL

REACTIONS (6)
  - Thrombocytopenia [Recovered/Resolved]
  - Aspartate aminotransferase increased [Recovered/Resolved]
  - Leukopenia [Recovered/Resolved]
  - Alanine aminotransferase increased [Recovered/Resolved]
  - Nausea [Recovered/Resolved]
  - Pneumonia [Recovered/Resolved]

NARRATIVE: CASE EVENT DATE: 20240809
